FAERS Safety Report 8943859 (Version 2)
Quarter: 2014Q2

REPORT INFORMATION
  Report Type: Spontaneous
  Country: US (occurrence: US)
  Receive Date: 20121204
  Receipt Date: 20140515
  Transmission Date: 20141212
  Serious: No
  Sender: FDA-Public Use
  Company Number: US-ASTRAZENECA-2012SE23773

PATIENT
  Age: 48 Year
  Sex: Female
  Weight: 102.1 kg

DRUGS (3)
  1. NEXIUM [Suspect]
     Indication: GASTROOESOPHAGEAL REFLUX DISEASE
     Route: 048
     Dates: start: 2002
  2. CLARITIN [Concomitant]
     Indication: MULTIPLE ALLERGIES
  3. XANAX [Concomitant]
     Indication: ANXIETY

REACTIONS (4)
  - Hypertension [Unknown]
  - Blood cholesterol increased [Unknown]
  - Arthritis [Unknown]
  - Intentional product misuse [Unknown]
